FAERS Safety Report 7045923-2 (Version None)
Quarter: 2010Q4

REPORT INFORMATION
  Report Type: 
  Country: None (occurrence: None)
  Receive Date: 20101014
  Receipt Date: 20100928
  Transmission Date: 20110411
  Serious: Yes (Hospitalization)
  Sender: FDA-Public Use
  Company Number: US-ELI_LILLY_AND_COMPANY-US201010001410

PATIENT
  Age: 65 Year
  Sex: Female

DRUGS (10)
  1. PRASUGREL HYDROCHLORIDE [Suspect]
     Indication: ACUTE CORONARY SYNDROME
     Dosage: 60 MG, UNK
     Dates: start: 20100830
  2. PRASUGREL HYDROCHLORIDE [Suspect]
     Dosage: 10 MG, UNK
     Dates: start: 20100831
  3. ASPIRIN [Concomitant]
     Dosage: 325 MG, UNK
     Dates: start: 20020101
  4. CLOPIDOGREL [Concomitant]
     Indication: ANTIPLATELET THERAPY
     Dosage: 75 MG, DAILY (1/D)
     Route: 048
     Dates: start: 20100828, end: 20100830
  5. ENOXAPARIN SODIUM [Concomitant]
     Indication: ANTICOAGULANT THERAPY
     Dosage: 200 MG, 2/D
     Route: 050
     Dates: start: 20100828, end: 20100830
  6. METOPROLOL [Concomitant]
     Dosage: 50 MG, DAILY (1/D)
     Route: 048
     Dates: start: 20090101
  7. SIMVASTATIN [Concomitant]
     Indication: BLOOD CHOLESTEROL
     Dosage: 80 MG, DAILY (1/D)
     Route: 048
     Dates: start: 20100828
  8. EPTIFIBATIDE [Concomitant]
     Indication: ANTIPLATELET THERAPY
     Dosage: 204 MG, OTHER
     Route: 042
     Dates: start: 20100830, end: 20100831
  9. LISINOPRIL [Concomitant]
     Indication: HYPERTENSION
     Dosage: 20 MG, 2/D
     Route: 048
     Dates: start: 20070101, end: 20100828
  10. LOVASTATIN [Concomitant]
     Indication: BLOOD CHOLESTEROL
     Dosage: 40 MG, 2/D
     Route: 048
     Dates: start: 20020101, end: 20100828

REACTIONS (1)
  - ANGINA PECTORIS [None]
